FAERS Safety Report 13352517 (Version 1)
Quarter: 2017Q1

REPORT INFORMATION
  Report Type: Spontaneous
  Country: US (occurrence: US)
  Receive Date: 20170320
  Receipt Date: 20170320
  Transmission Date: 20170429
  Serious: No
  Sender: FDA-Public Use
  Company Number: US-ALLERGAN-1655329US

PATIENT
  Sex: Female
  Weight: 82.86 kg

DRUGS (6)
  1. MYRBETRIQ [Concomitant]
     Active Substance: MIRABEGRON
     Indication: HYPERTONIC BLADDER
  2. ALEVE [Concomitant]
     Active Substance: NAPROXEN SODIUM
     Indication: SLEEP DISORDER
     Dosage: UNK
  3. ESTRACE [Concomitant]
     Active Substance: ESTRADIOL
     Indication: ACNE
  4. PRAVACHOL [Concomitant]
     Active Substance: PRAVASTATIN SODIUM
     Indication: BLOOD CHOLESTEROL INCREASED
     Dosage: UNK
  5. ZYRTEC [Concomitant]
     Active Substance: CETIRIZINE HYDROCHLORIDE
     Indication: SINUS HEADACHE
  6. OXYTROL FOR WOMEN [Suspect]
     Active Substance: OXYBUTYNIN
     Indication: HYPERTONIC BLADDER
     Dosage: UNK, BI-WEEKLY
     Route: 062
     Dates: start: 201602, end: 201605

REACTIONS (4)
  - Application site urticaria [Recovered/Resolved]
  - Application site pruritus [Recovered/Resolved]
  - Drug ineffective [Unknown]
  - Application site erythema [Recovered/Resolved]
